FAERS Safety Report 5155791-1 (Version None)
Quarter: 2006Q4

REPORT INFORMATION
  Report Type: 
  Country: None (occurrence: None)
  Receive Date: 20061113
  Receipt Date: 20061024
  Transmission Date: 20070319
  Serious: Yes (Death)
  Sender: FDA-Public Use
  Company Number: PAR_0987_2006

PATIENT
  Age: 45 Year

DRUGS (3)
  1. HALOPERIDOL [Suspect]
     Dosage: DF PO
     Route: 048
  2. BENZOTROPINE [Suspect]
     Dosage: DF PO
     Route: 048
  3. DIPHENHYDRAMINE HCL [Suspect]
     Dosage: DF PO
     Route: 048

REACTIONS (1)
  - ADVERSE DRUG REACTION [None]
